FAERS Safety Report 9106389 (Version 1)
Quarter: 2013Q1

REPORT INFORMATION
  Report Type: Spontaneous
  Country: US (occurrence: US)
  Receive Date: 20130221
  Receipt Date: 20130221
  Transmission Date: 20140127
  Serious: No
  Sender: FDA-Public Use
  Company Number: US-ASTRAZENECA-2013SE10943

PATIENT
  Sex: Male

DRUGS (2)
  1. SYMBICORT [Suspect]
     Indication: ASTHMA
     Dosage: 160 MCG 2 PUFFS, BID
     Route: 055
     Dates: start: 20130201
  2. SYMBICORT [Suspect]
     Indication: COUGH
     Dosage: 160 MCG 2 PUFFS, BID
     Route: 055
     Dates: start: 20130201

REACTIONS (2)
  - Chest pain [Unknown]
  - Oropharyngeal pain [Unknown]
